FAERS Safety Report 23723551 (Version 2)
Quarter: 2024Q2

REPORT INFORMATION
  Report Type: Spontaneous
  Country: US (occurrence: US)
  Receive Date: 20240409
  Receipt Date: 20240506
  Transmission Date: 20240716
  Serious: No
  Sender: FDA-Public Use
  Company Number: US-SA-2024SA095424

PATIENT
  Age: 77 Year
  Sex: Male

DRUGS (16)
  1. DUPIXENT [Suspect]
     Active Substance: DUPILUMAB
     Indication: Dermatitis atopic
     Dosage: 600 MG, 1X
     Route: 058
     Dates: start: 20240325, end: 20240325
  2. DUPIXENT [Suspect]
     Active Substance: DUPILUMAB
     Dosage: 300 MG, QOW
     Route: 058
     Dates: start: 202404
  3. ALLOPURINOL [Concomitant]
     Active Substance: ALLOPURINOL
  4. ATENOLOL [Concomitant]
     Active Substance: ATENOLOL
  5. BICALUTAMIDE [Concomitant]
     Active Substance: BICALUTAMIDE
  6. CELECOXIB [Concomitant]
     Active Substance: CELECOXIB
  7. DIGOXIN [Concomitant]
     Active Substance: DIGOXIN
  8. ELIQUIS [Concomitant]
     Active Substance: APIXABAN
  9. FISH OIL [Concomitant]
     Active Substance: FISH OIL
  10. METFORMIN HYDROCHLORIDE [Concomitant]
     Active Substance: METFORMIN HYDROCHLORIDE
  11. METOLAZONE [Concomitant]
     Active Substance: METOLAZONE
  12. VITAMIN B12 [Concomitant]
     Active Substance: CYANOCOBALAMIN
  13. VITAMIN D NOS [Concomitant]
     Active Substance: VITAMIN D NOS
  14. ASCORBIC ACID\FERROUS FUMARATE [Concomitant]
     Active Substance: ASCORBIC ACID\FERROUS FUMARATE
     Dosage: VITRON-C TAB 65-125MG
  15. LEVOTHYROXINE [Concomitant]
     Active Substance: LEVOTHYROXINE\LEVOTHYROXINE SODIUM
  16. LOSARTAN POTASSIUM [Concomitant]
     Active Substance: LOSARTAN POTASSIUM

REACTIONS (1)
  - Dry skin [Not Recovered/Not Resolved]

NARRATIVE: CASE EVENT DATE: 20240101
